FAERS Safety Report 17770352 (Version 1)
Quarter: 2020Q2

REPORT INFORMATION
  Report Type: Spontaneous
  Country: US (occurrence: US)
  Receive Date: 20200512
  Receipt Date: 20200512
  Transmission Date: 20200714
  Serious: No
  Sender: FDA-Public Use
  Company Number: US-TARO-2019TAR00797

PATIENT
  Age: 84 Year
  Sex: Female
  Weight: 65.76 kg

DRUGS (4)
  1. CARBAMAZEPINE EXTENDED RELEASE TABLETS USP 100MG [Suspect]
     Active Substance: CARBAMAZEPINE
     Indication: MANIA
     Dosage: 100 MG, 2X/DAY
     Route: 048
     Dates: start: 201910, end: 2019
  2. LITHIUM. [Concomitant]
     Active Substance: LITHIUM
  3. ZOLOFT [Concomitant]
     Active Substance: SERTRALINE HYDROCHLORIDE
     Dosage: UNK
     Dates: end: 2019
  4. SYNTHROID [Concomitant]
     Active Substance: LEVOTHYROXINE SODIUM

REACTIONS (5)
  - Road traffic accident [Recovered/Resolved]
  - Off label use [Recovered/Resolved]
  - Unevaluable event [Recovered/Resolved]
  - Headache [Recovered/Resolved]
  - Abdominal pain upper [Recovered/Resolved]

NARRATIVE: CASE EVENT DATE: 2019
